FAERS Safety Report 21372140 (Version 1)
Quarter: 2022Q3

REPORT INFORMATION
  Report Type: Report from Study
  Country: CO (occurrence: CO)
  Receive Date: 20220923
  Receipt Date: 20220923
  Transmission Date: 20221027
  Serious: Yes (Other)
  Sender: FDA-Public Use
  Company Number: CO-ALLERGAN-2230760US

PATIENT
  Sex: Female
  Weight: 56 kg

DRUGS (2)
  1. BOTULINUM TOXIN TYPE A [Suspect]
     Active Substance: BOTULINUM TOXIN TYPE A
     Indication: Dystonia
     Dosage: UNK, SINGLE
     Dates: start: 20220805, end: 20220805
  2. BOTULINUM TOXIN TYPE A [Suspect]
     Active Substance: BOTULINUM TOXIN TYPE A
     Indication: Facial spasm
     Dosage: UNK UNK, SINGLE
     Route: 030
     Dates: start: 20220423, end: 20220423

REACTIONS (6)
  - Facial paralysis [Not Recovered/Not Resolved]
  - Eyelid disorder [Recovering/Resolving]
  - Facial discomfort [Recovering/Resolving]
  - Asthenopia [Not Recovered/Not Resolved]
  - Muscle disorder [Recovering/Resolving]
  - Vision blurred [Not Recovered/Not Resolved]

NARRATIVE: CASE EVENT DATE: 20220401
